FAERS Safety Report 6729517-1 (Version None)
Quarter: 2010Q2

REPORT INFORMATION
  Report Type: 
  Country: None (occurrence: None)
  Receive Date: 20100518
  Receipt Date: 20100510
  Transmission Date: 20101027
  Serious: No
  Sender: FDA-Public Use
  Company Number: US-BIOGENIDEC-2010BI015766

PATIENT
  Sex: Female

DRUGS (3)
  1. TYSABRI [Suspect]
     Indication: MULTIPLE SCLEROSIS
     Route: 042
     Dates: start: 20080428, end: 20080821
  2. TYSABRI [Suspect]
     Route: 042
     Dates: start: 20090216, end: 20090720
  3. TYSABRI [Suspect]
     Route: 042
     Dates: start: 20091123

REACTIONS (5)
  - APHASIA [None]
  - CONTUSION [None]
  - PAIN IN EXTREMITY [None]
  - POOR VENOUS ACCESS [None]
  - VISUAL BRIGHTNESS [None]
